FAERS Safety Report 8569988-1 (Version None)
Quarter: 2012Q3

REPORT INFORMATION
  Report Type: 
  Country: None (occurrence: None)
  Receive Date: 20120803
  Receipt Date: 20120621
  Transmission Date: 20120928
  Serious: No
  Sender: FDA-Public Use
  Company Number: US-ABBOTT-12P-163-0948592-00

PATIENT
  Sex: Female
  Weight: 54.48 kg

DRUGS (7)
  1. CARBIDOPA AND LEVODOPA [Concomitant]
     Indication: PRODUCT USED FOR UNKNOWN INDICATION
  2. SIMCOR [Suspect]
     Indication: BLOOD CHOLESTEROL
     Dosage: 1000MG/20MG AT BEDTIME
     Dates: start: 20100101, end: 20100101
  3. SIMCOR [Suspect]
     Indication: FAMILIAL RISK FACTOR
     Dosage: 1000MG/20MG AT BEDTIME
     Dates: start: 20100101
  4. ASPIRIN [Concomitant]
     Dosage: 81MG WITH SIMCOR AND NIASPAN DOSE
  5. NIASPAN [Suspect]
     Indication: BLOOD CHOLESTEROL
     Dosage: 500MG AT BEDTIME
     Dates: start: 20100401
  6. ASPIRIN [Concomitant]
     Indication: PRODUCT USED FOR UNKNOWN INDICATION
     Dosage: 81MG 1 HOUR BEFORE SIMCOR
  7. NIASPAN [Suspect]
     Indication: FAMILIAL RISK FACTOR

REACTIONS (6)
  - VIRAL INFECTION [None]
  - FLUSHING [None]
  - PARKINSON'S DISEASE [None]
  - SKIN BURNING SENSATION [None]
  - TREMOR [None]
  - NAUSEA [None]
